FAERS Safety Report 19815067 (Version 1)
Quarter: 2021Q3

REPORT INFORMATION
  Report Type: Report from Study
  Country: NO (occurrence: NO)
  Receive Date: 20210910
  Receipt Date: 20210910
  Transmission Date: 20211014
  Serious: Yes (Hospitalization)
  Sender: FDA-Public Use
  Company Number: NO-TAKEDA-2021TUS054872

PATIENT
  Age: 65 Year
  Sex: Male

DRUGS (2)
  1. LENALIDOMIDE [Suspect]
     Active Substance: LENALIDOMIDE
     Indication: PLASMA CELL MYELOMA
     Dosage: 10 MILLIGRAM
     Route: 048
     Dates: start: 20210311
  2. IXAZOMIB [Suspect]
     Active Substance: IXAZOMIB
     Indication: PLASMA CELL MYELOMA
     Dosage: 4 MILLIGRAM
     Route: 048
     Dates: start: 20210311

REACTIONS (1)
  - Osteomyelitis [Not Recovered/Not Resolved]

NARRATIVE: CASE EVENT DATE: 20210827
